FAERS Safety Report 22602259 (Version 1)
Quarter: 2023Q2

REPORT INFORMATION
  Report Type: Report from Study
  Country: ES (occurrence: ES)
  Receive Date: 20230614
  Receipt Date: 20230614
  Transmission Date: 20230722
  Serious: Yes (Hospitalization)
  Sender: FDA-Public Use
  Company Number: ES-002147023-NVSC2023ES134293

PATIENT
  Age: 40 Year
  Sex: Male

DRUGS (6)
  1. MYFORTIC [Suspect]
     Active Substance: MYCOPHENOLATE SODIUM
     Indication: Glomerulonephritis
     Dosage: UNK
     Route: 065
  2. MYFORTIC [Suspect]
     Active Substance: MYCOPHENOLATE SODIUM
     Indication: Glomerulonephritis membranoproliferative
  3. ENALAPRIL [Suspect]
     Active Substance: ENALAPRIL
     Indication: Glomerulonephritis
     Dosage: UNK
     Route: 065
  4. ENALAPRIL [Suspect]
     Active Substance: ENALAPRIL
     Indication: Glomerulonephritis membranoproliferative
  5. PREDNISONE [Concomitant]
     Active Substance: PREDNISONE
     Indication: Glomerulonephritis
     Dosage: UNK
     Route: 065
  6. PREDNISONE [Concomitant]
     Active Substance: PREDNISONE
     Indication: Glomerulonephritis membranoproliferative

REACTIONS (2)
  - Pneumonia [Unknown]
  - Off label use [Unknown]
